FAERS Safety Report 25840235 (Version 1)
Quarter: 2025Q3

REPORT INFORMATION
  Report Type: Spontaneous
  Country: BR (occurrence: BR)
  Receive Date: 20250924
  Receipt Date: 20250924
  Transmission Date: 20251020
  Serious: Yes (Other)
  Sender: CHEPLAPHARM
  Company Number: BR-CHEPLA-2025011083

PATIENT
  Age: 35 Year
  Sex: Male

DRUGS (7)
  1. CLONAZEPAM [Suspect]
     Active Substance: CLONAZEPAM
     Indication: Anxiety
     Route: 048
     Dates: start: 2001
  2. CLONAZEPAM [Suspect]
     Active Substance: CLONAZEPAM
     Indication: Panic attack
     Route: 048
     Dates: start: 2001
  3. CLONAZEPAM [Suspect]
     Active Substance: CLONAZEPAM
     Indication: Tremor
     Route: 048
     Dates: start: 2001
  4. CLONAZEPAM [Suspect]
     Active Substance: CLONAZEPAM
     Indication: Anxiety
     Dosage: MAH REF 115240011; 2 MG; AT NIGHT?DAILY DOSE: 1 DOSAGE FORM
     Route: 048
  5. CLONAZEPAM [Suspect]
     Active Substance: CLONAZEPAM
     Indication: Panic attack
     Dosage: MAH REF 115240011; 2 MG; AT NIGHT?DAILY DOSE: 1 DOSAGE FORM
     Route: 048
  6. CLONAZEPAM [Suspect]
     Active Substance: CLONAZEPAM
     Indication: Tremor
     Dosage: MAH REF 115240011; 2 MG; AT NIGHT?DAILY DOSE: 1 DOSAGE FORM
     Route: 048
  7. CLONAZEPAM [Concomitant]
     Active Substance: CLONAZEPAM
     Indication: Drug ineffective

REACTIONS (6)
  - Drug dependence [Not Recovered/Not Resolved]
  - Intentional product use issue [Recovered/Resolved]
  - Memory impairment [Not Recovered/Not Resolved]
  - Therapy interrupted [Not Recovered/Not Resolved]
  - Product use issue [Recovered/Resolved]
  - Product availability issue [Not Recovered/Not Resolved]
